FAERS Safety Report 4555244-5 (Version None)
Quarter: 2004Q4

REPORT INFORMATION
  Report Type: 
  Country: None (occurrence: None)
  Receive Date: 20041217
  Receipt Date: 20040830
  Transmission Date: 20050328
  Serious: No
  Sender: FDA-Public Use
  Company Number: 2004-BP-07479BP

PATIENT
  Age: 76 Year
  Sex: Male

DRUGS (10)
  1. SPIRIVA [Suspect]
     Indication: CHRONIC OBSTRUCTIVE AIRWAYS DISEASE
     Dosage: 18 MCG (18 MCG, 18 MCG ONCE DAILY), IH
     Route: 055
     Dates: start: 20040811, end: 20040815
  2. SPIRIVA [Suspect]
  3. XOPONEX (LEVOSALBUTAMOL) [Concomitant]
  4. PULMICORT [Concomitant]
  5. DETROL LA [Concomitant]
  6. MONOPRIL [Concomitant]
  7. TRIAMLERINE [Concomitant]
  8. PAXIL [Concomitant]
  9. TERAZOSIN (TERAZOSIN) [Concomitant]
  10. PROSCAR [Concomitant]

REACTIONS (1)
  - DRUG INEFFECTIVE [None]
